FAERS Safety Report 5644339-0 (Version None)
Quarter: 2008Q1

REPORT INFORMATION
  Report Type: 
  Country: None (occurrence: None)
  Receive Date: 20080229
  Receipt Date: 20080225
  Transmission Date: 20080703
  Serious: Yes (Death)
  Sender: FDA-Public Use
  Company Number: US-BRISTOL-MYERS SQUIBB COMPANY-14088934

PATIENT
  Age: 6 Year
  Sex: Male

DRUGS (13)
  1. CARBOPLATIN [Suspect]
     Indication: BURKITT'S LYMPHOMA
  2. CYCLOPHOSPHAMIDE [Suspect]
     Indication: BURKITT'S LYMPHOMA
  3. DOXORUBICIN HCL [Suspect]
     Indication: BURKITT'S LYMPHOMA
  4. ETOPOSIDE [Suspect]
     Indication: BURKITT'S LYMPHOMA
  5. IFOSFAMIDE [Suspect]
     Indication: BURKITT'S LYMPHOMA
  6. METHOTREXATE [Suspect]
     Indication: BURKITT'S LYMPHOMA
     Route: 037
  7. METHOTREXATE [Suspect]
     Indication: PROPHYLAXIS
     Route: 037
  8. VINCRISTINE SULFATE [Suspect]
     Indication: BURKITT'S LYMPHOMA
  9. CIDOFOVIR [Suspect]
  10. RITUXIMAB [Suspect]
     Indication: BURKITT'S LYMPHOMA
  11. PREDNISONE TAB [Suspect]
     Indication: BURKITT'S LYMPHOMA
  12. RADIOTHERAPY [Suspect]
     Indication: BURKITT'S LYMPHOMA
  13. CYCLOSPORINE [Suspect]
     Indication: PROPHYLAXIS

REACTIONS (1)
  - ENCEPHALOPATHY [None]
